FAERS Safety Report 13097293 (Version 1)
Quarter: 2017Q1

REPORT INFORMATION
  Report Type: Spontaneous
  Country: US (occurrence: US)
  Receive Date: 20170109
  Receipt Date: 20170109
  Transmission Date: 20170428
  Serious: No
  Sender: FDA-Public Use
  Company Number: US-PFIZER INC-2017005731

PATIENT
  Age: 49 Year
  Sex: Male
  Weight: 75 kg

DRUGS (1)
  1. ADVIL [Suspect]
     Active Substance: IBUPROFEN
     Indication: PAIN
     Dosage: 400 MG, 1X/DAY
     Route: 048
     Dates: start: 20170103, end: 20170103

REACTIONS (6)
  - Oropharyngeal pain [Not Recovered/Not Resolved]
  - Dysgeusia [Unknown]
  - Throat irritation [Unknown]
  - Dysphagia [Unknown]
  - Product taste abnormal [Unknown]
  - Foreign body [Unknown]

NARRATIVE: CASE EVENT DATE: 20170103
